FAERS Safety Report 11388366 (Version 1)
Quarter: 2015Q3

REPORT INFORMATION
  Report Type: Spontaneous
  Country: BR (occurrence: BR)
  Receive Date: 20150817
  Receipt Date: 20150817
  Transmission Date: 20151125
  Serious: Yes (Other)
  Sender: FDA-Public Use
  Company Number: BR-JNJFOC-20150808491

PATIENT
  Age: 52 Year
  Sex: Female

DRUGS (1)
  1. REMICADE [Suspect]
     Active Substance: INFLIXIMAB
     Indication: PSORIASIS
     Route: 042
     Dates: start: 2009

REACTIONS (5)
  - Psoriasis [Unknown]
  - Somnolence [Unknown]
  - Glaucoma [Unknown]
  - Arthralgia [Unknown]
  - Drug effect decreased [Unknown]
